FAERS Safety Report 8258374-X (Version None)
Quarter: 2012Q2

REPORT INFORMATION
  Report Type: 
  Country: None (occurrence: None)
  Receive Date: 20120403
  Receipt Date: 20120403
  Transmission Date: 20120825
  Serious: Yes (Other)
  Sender: FDA-Public Use
  Company Number: None

PATIENT
  Sex: Female
  Weight: 64.4108 kg

DRUGS (2)
  1. DEXILANT [Suspect]
  2. MALARONE [Concomitant]

REACTIONS (2)
  - ATRIOVENTRICULAR BLOCK [None]
  - FATIGUE [None]
